FAERS Safety Report 17180371 (Version 2)
Quarter: 2021Q3

REPORT INFORMATION
  Report Type: Report from Study
  Country: JP (occurrence: JP)
  Receive Date: 20191219
  Receipt Date: 20210916
  Transmission Date: 20211014
  Serious: Yes (Death)
  Sender: FDA-Public Use
  Company Number: JP-BIOCODEX SA-201901694

PATIENT

DRUGS (20)
  1. DIACOMIT [Suspect]
     Active Substance: STIRIPENTOL
     Dosage: 1500 MG, QD
     Route: 048
     Dates: start: 20160112, end: 20160411
  2. CLOBAZAM. [Concomitant]
     Active Substance: CLOBAZAM
     Dosage: UNK
     Route: 048
     Dates: start: 20190917
  3. DIACOMIT [Suspect]
     Active Substance: STIRIPENTOL
     Dosage: UNK
     Route: 048
     Dates: start: 20151001, end: 20151109
  4. SODIUM VALPROATE [Concomitant]
     Active Substance: VALPROATE SODIUM
     Indication: SEVERE MYOCLONIC EPILEPSY OF INFANCY
     Route: 048
     Dates: start: 20140311, end: 20161114
  5. DIACOMIT [Suspect]
     Active Substance: STIRIPENTOL
     Dosage: UNK
     Route: 048
     Dates: start: 20151110, end: 20160111
  6. CLOBAZAM. [Concomitant]
     Active Substance: CLOBAZAM
     Dosage: UNK
     Route: 048
     Dates: start: 20190312, end: 20190520
  7. CARBAMAZEPINE. [Concomitant]
     Active Substance: CARBAMAZEPINE
     Indication: SEVERE MYOCLONIC EPILEPSY OF INFANCY
     Route: 048
     Dates: start: 20190521
  8. DIACOMIT [Suspect]
     Active Substance: STIRIPENTOL
     Dosage: UNK
     Route: 048
     Dates: start: 20160412, end: 20161114
  9. DIACOMIT [Suspect]
     Active Substance: STIRIPENTOL
     Dosage: UNK
     Route: 048
     Dates: start: 20150121, end: 20150330
  10. DIACOMIT [Suspect]
     Active Substance: STIRIPENTOL
     Dosage: 750 MG, QD
     Route: 048
     Dates: start: 20150904, end: 20150930
  11. SODIUM VALPROATE [Concomitant]
     Active Substance: VALPROATE SODIUM
     Dosage: UNK
     Route: 048
     Dates: start: 20161115
  12. CLOBAZAM. [Concomitant]
     Active Substance: CLOBAZAM
     Dosage: 18 MG, QD
     Route: 048
     Dates: start: 20190521, end: 20190916
  13. DIACOMIT [Suspect]
     Active Substance: STIRIPENTOL
     Dosage: 250 MG, QD
     Route: 048
     Dates: start: 20141220, end: 20150120
  14. CLOBAZAM. [Concomitant]
     Active Substance: CLOBAZAM
     Indication: SEVERE MYOCLONIC EPILEPSY OF INFANCY
     Dosage: 10 MG, QD
     Route: 048
     Dates: start: 20130118, end: 20190211
  15. DIACOMIT [Suspect]
     Active Substance: STIRIPENTOL
     Indication: SEVERE MYOCLONIC EPILEPSY OF INFANCY
     Route: 048
     Dates: start: 20141108, end: 20141219
  16. DIACOMIT [Suspect]
     Active Substance: STIRIPENTOL
     Dosage: 500 MG, QD
     Route: 048
     Dates: start: 20150331, end: 20150903
  17. DIACOMIT [Suspect]
     Active Substance: STIRIPENTOL
     Dosage: 1000 MG, QD
     Route: 048
     Dates: start: 20161115, end: 20170106
  18. DIACOMIT [Suspect]
     Active Substance: STIRIPENTOL
     Dosage: UNK, QD
     Route: 048
     Dates: start: 20170107
  19. CLOBAZAM. [Concomitant]
     Active Substance: CLOBAZAM
     Dosage: UNK
     Route: 048
     Dates: start: 20190212, end: 20190311
  20. PANTETHINE [Concomitant]
     Active Substance: PANTETHINE
     Indication: THROMBOCYTOPENIA
     Route: 048
     Dates: start: 20130118

REACTIONS (1)
  - Pneumonia aspiration [Fatal]

NARRATIVE: CASE EVENT DATE: 20191112
